FAERS Safety Report 7320823-9 (Version None)
Quarter: 2011Q1

REPORT INFORMATION
  Report Type: 
  Country: None (occurrence: None)
  Receive Date: 20110228
  Receipt Date: 20110221
  Transmission Date: 20110831
  Serious: Yes (Other)
  Sender: FDA-Public Use
  Company Number: US-TEVA-268122USA

PATIENT
  Sex: Male

DRUGS (1)
  1. CLARAVIS [Suspect]
     Route: 048

REACTIONS (9)
  - FATIGUE [None]
  - MUSCULAR WEAKNESS [None]
  - HEADACHE [None]
  - BONE DISORDER [None]
  - DYSPNOEA [None]
  - VISION BLURRED [None]
  - CHEST PAIN [None]
  - SUICIDAL IDEATION [None]
  - ASTHENIA [None]
